FAERS Safety Report 8429828 (Version 4)
Quarter: 2012Q4

REPORT INFORMATION
  Report Type: 
  Country: FR (occurrence: FR)
  Receive Date: 20120228
  Receipt Date: 20121220
  Transmission Date: 20130627
  Serious: Yes (Hospitalization, Other)
  Sender: FDA-Public Use
  Company Number: FR-SP-2012-02326

PATIENT
  Sex: Male

DRUGS (8)
  1. IMMUCYST 81 MG [Suspect]
     Indication: BLADDER CANCER
     Route: 043
     Dates: start: 2009, end: 201004
  2. BISOPROLOL [Concomitant]
  3. CANDESARTAN [Concomitant]
  4. CRESTOR (ROSUVASTATIN) [Concomitant]
  5. KARDEGIC [Concomitant]
  6. TRANSIPEG [Concomitant]
  7. INEXIUM (ESOMEPRAZOLE) [Concomitant]
  8. GAVISCON [Concomitant]

REACTIONS (5)
  - Tuberculosis bladder [Not Recovered/Not Resolved]
  - Cystitis noninfective [Not Recovered/Not Resolved]
  - Inflammation [Not Recovered/Not Resolved]
  - Leukocyturia [Not Recovered/Not Resolved]
  - Haematuria [Not Recovered/Not Resolved]
